FAERS Safety Report 25933588 (Version 1)
Quarter: 2025Q4

REPORT INFORMATION
  Report Type: Spontaneous
  Country: US (occurrence: US)
  Receive Date: 20251017
  Receipt Date: 20251017
  Transmission Date: 20260118
  Serious: No
  Sender: ALEMBIC
  Company Number: US-ALEMBIC PHARMACUETICALS LIMITED-2025SCAL001359

PATIENT

DRUGS (4)
  1. DAPSONE [Suspect]
     Active Substance: DAPSONE
     Indication: Acne
     Dosage: ONCE EVERY MORNING
     Route: 061
     Dates: start: 20251003, end: 20251004
  2. SPIRONOLACTONE [Concomitant]
     Active Substance: SPIRONOLACTONE
     Indication: Acne
     Dosage: 150 MILLIGRAM, QD
     Route: 065
  3. SPRINTEC [Concomitant]
     Active Substance: ETHINYL ESTRADIOL\NORGESTIMATE
     Indication: Oral contraception
     Dosage: UNK, QD
     Route: 048
  4. TAZAROTENE [Concomitant]
     Active Substance: TAZAROTENE
     Indication: Acne
     Dosage: EVERY NIGHT
     Route: 061

REACTIONS (5)
  - Skin irritation [Recovered/Resolved]
  - Skin abrasion [Recovered/Resolved]
  - Application site pain [Recovered/Resolved]
  - Product quality issue [Unknown]
  - Product physical issue [Unknown]

NARRATIVE: CASE EVENT DATE: 20251003
